FAERS Safety Report 7068599-7 (Version None)
Quarter: 2010Q4

REPORT INFORMATION
  Report Type: 
  Country: None (occurrence: None)
  Receive Date: 20101028
  Receipt Date: 20101028
  Transmission Date: 20110411
  Serious: Yes (Hospitalization)
  Sender: FDA-Public Use
  Company Number: PHHO2008PL12180

PATIENT
  Sex: Female
  Weight: 96 kg

DRUGS (7)
  1. PLACEBO OR VALSARTAN [Suspect]
     Indication: CARDIOVASCULAR DISORDER
     Dosage: LEVEL 1
     Dates: start: 20020319
  2. PLACEBO OR VALSARTAN [Suspect]
     Dosage: LEVEL 2
     Route: 048
     Dates: end: 20080930
  3. PLACEBO PLACEBO [Suspect]
     Indication: GLUCOSE TOLERANCE IMPAIRED
     Dosage: LEVEL 1
     Dates: start: 20020319
  4. PLACEBO PLACEBO [Suspect]
     Dosage: LEVEL 2
     Route: 048
     Dates: end: 20080930
  5. LACIDIPINE [Concomitant]
  6. BISOPROLOL [Concomitant]
  7. INDAPAMIDE [Concomitant]

REACTIONS (7)
  - CHEST PAIN [None]
  - CORONARY ARTERY DISEASE [None]
  - DISEASE PROGRESSION [None]
  - DRUG INEFFECTIVE [None]
  - GLUCOSE TOLERANCE IMPAIRED [None]
  - HYPERTENSION [None]
  - HYPERTENSIVE CRISIS [None]
